FAERS Safety Report 5204649-8 (Version None)
Quarter: 2007Q1

REPORT INFORMATION
  Report Type: 
  Country: None (occurrence: None)
  Receive Date: 20070110
  Receipt Date: 20060606
  Transmission Date: 20070707
  Serious: No
  Sender: FDA-Public Use
  Company Number: US-BRISTOL-MYERS SQUIBB COMPANY-13402672

PATIENT
  Age: 36 Year
  Sex: Female

DRUGS (6)
  1. ABILIFY [Suspect]
     Route: 048
     Dates: start: 20060601
  2. TOPAMAX [Concomitant]
  3. ZELNORM [Concomitant]
  4. KLONOPIN [Concomitant]
  5. WELLBUTRIN [Concomitant]
  6. PROTONIX [Concomitant]

REACTIONS (3)
  - AURA [None]
  - DISTURBANCE IN ATTENTION [None]
  - FATIGUE [None]
